FAERS Safety Report 16097111 (Version 1)
Quarter: 2019Q1

REPORT INFORMATION
  Report Type: Spontaneous
  Country: LK (occurrence: LK)
  Receive Date: 20190320
  Receipt Date: 20190320
  Transmission Date: 20190418
  Serious: Yes (Hospitalization, Other)
  Sender: FDA-Public Use
  Company Number: LK-AMNEAL PHARMACEUTICALS-2019AMN00342

PATIENT
  Age: 18 Year
  Sex: Female

DRUGS (1)
  1. METFORMIN HYDROCHLORIDE. [Suspect]
     Active Substance: METFORMIN HYDROCHLORIDE
     Indication: PRODUCT USED FOR UNKNOWN INDICATION
     Dosage: 17.5 G
     Route: 065

REACTIONS (8)
  - Dyspnoea [Unknown]
  - Generalised tonic-clonic seizure [Unknown]
  - Acute kidney injury [Recovered/Resolved]
  - Abdominal pain upper [Unknown]
  - Hypoglycaemia [Unknown]
  - Overdose [Unknown]
  - Vomiting [Unknown]
  - Metabolic acidosis [Recovering/Resolving]
